FAERS Safety Report 21245390 (Version 12)
Quarter: 2024Q4

REPORT INFORMATION
  Report Type: Report from Study
  Country: US (occurrence: US)
  Receive Date: 20220824
  Receipt Date: 20241218
  Transmission Date: 20250115
  Serious: Yes (Hospitalization, Other)
  Sender: TAKEDA
  Company Number: US-TAKEDA-2022TUS058135

PATIENT
  Age: 69 Year
  Sex: Female
  Weight: 78.45 kg

DRUGS (7)
  1. TEDUGLUTIDE [Suspect]
     Active Substance: TEDUGLUTIDE
     Indication: Short-bowel syndrome
     Dosage: 0.36 MILLILITER, QD
     Dates: start: 202006
  2. TEDUGLUTIDE [Suspect]
     Active Substance: TEDUGLUTIDE
     Dosage: 3.64 MILLIGRAM, QD
     Dates: start: 20220627
  3. TEDUGLUTIDE [Suspect]
     Active Substance: TEDUGLUTIDE
     Dosage: 3.64 MILLIGRAM, QD
     Dates: start: 20220628
  4. TEDUGLUTIDE [Suspect]
     Active Substance: TEDUGLUTIDE
     Dosage: 3.64 MILLIGRAM, QD
     Dates: start: 202206
  5. TEDUGLUTIDE [Suspect]
     Active Substance: TEDUGLUTIDE
     Dosage: 0.36 MILLILITER, QD
     Dates: start: 20230331
  6. TEDUGLUTIDE [Suspect]
     Active Substance: TEDUGLUTIDE
     Dosage: 3.64 MILLIGRAM, 1/WEEK
  7. TEDUGLUTIDE [Suspect]
     Active Substance: TEDUGLUTIDE
     Dosage: 0.36 MILLILITER, QD

REACTIONS (30)
  - Dehydration [Unknown]
  - Muscle spasms [Unknown]
  - Chills [Unknown]
  - Respiratory syncytial virus infection [Unknown]
  - Peripheral swelling [Unknown]
  - Joint swelling [Unknown]
  - Renal injury [Unknown]
  - Weight increased [Unknown]
  - Intestinal obstruction [Unknown]
  - Abdominal pain [Unknown]
  - Bone pain [Unknown]
  - Stoma complication [Unknown]
  - Arthralgia [Unknown]
  - Fall [Unknown]
  - Back pain [Unknown]
  - Abnormal faeces [Unknown]
  - Rectal discharge [Unknown]
  - Gastrointestinal mucosal disorder [Unknown]
  - Weight decreased [Unknown]
  - Mucous stools [Unknown]
  - Hepatic enzyme increased [Unknown]
  - Stoma site pain [Unknown]
  - Stoma site haemorrhage [Unknown]
  - Weight decreased [Unknown]
  - Hypophagia [Unknown]
  - Asthenia [Unknown]
  - Fatigue [Unknown]
  - Stoma site oedema [Unknown]
  - Abdominal distension [Unknown]
  - Gastrointestinal stoma complication [Unknown]

NARRATIVE: CASE EVENT DATE: 20240716
